FAERS Safety Report 24443567 (Version 1)
Quarter: 2024Q4

REPORT INFORMATION
  Report Type: Spontaneous
  Country: US (occurrence: US)
  Receive Date: 20241016
  Receipt Date: 20241016
  Transmission Date: 20250115
  Serious: Yes (Other)
  Sender: HIKMA
  Company Number: HIKM2403103

PATIENT
  Age: 75 Year
  Sex: Female

DRUGS (1)
  1. INFUMORPH [Suspect]
     Active Substance: MORPHINE SULFATE
     Indication: Spinal pain
     Dosage: UNKNOWN
     Route: 037

REACTIONS (2)
  - Postoperative wound infection [Unknown]
  - Underdose [Unknown]

NARRATIVE: CASE EVENT DATE: 20240130
